FAERS Safety Report 25147542 (Version 2)
Quarter: 2025Q3

REPORT INFORMATION
  Report Type: Report from Study
  Country: US (occurrence: US)
  Receive Date: 20250402
  Receipt Date: 20250810
  Transmission Date: 20251020
  Serious: Yes (Other)
  Sender: ALEXION PHARMACEUTICALS
  Company Number: US-ASTRAZENECA-202502USA023882US

PATIENT
  Age: 49 Year
  Sex: Female

DRUGS (1)
  1. ANIFROLUMAB [Suspect]
     Active Substance: ANIFROLUMAB
     Indication: Systemic lupus erythematosus
     Dosage: 300 MILLIGRAM, Q4W
     Dates: start: 202411

REACTIONS (3)
  - Autoimmune disorder [Unknown]
  - Systemic lupus erythematosus [Unknown]
  - Fatigue [Unknown]

NARRATIVE: CASE EVENT DATE: 20250225
